FAERS Safety Report 9477128 (Version 1)
Quarter: 2013Q3

REPORT INFORMATION
  Report Type: Spontaneous
  Country: US (occurrence: US)
  Receive Date: 20130826
  Receipt Date: 20130826
  Transmission Date: 20140515
  Serious: No
  Sender: FDA-Public Use
  Company Number: US-PFIZER INC-2013244701

PATIENT
  Age: 80 Year
  Sex: Female
  Weight: 83.45 kg

DRUGS (4)
  1. TIKOSYN [Suspect]
     Indication: ATRIAL FIBRILLATION
     Dosage: 250 UG, 2X/DAY
     Route: 048
     Dates: start: 2009
  2. ACEBUTOLOL [Concomitant]
     Indication: CARDIAC DISORDER
     Dosage: UNK
  3. SYNTHROID [Concomitant]
     Indication: HYPOTHYROIDISM
     Dosage: UNK
  4. COUMADINE [Concomitant]
     Dosage: UNK

REACTIONS (1)
  - Lung disorder [Unknown]
